FAERS Safety Report 25684022 (Version 1)
Quarter: 2025Q3

REPORT INFORMATION
  Report Type: Spontaneous
  Country: EU (occurrence: EU)
  Receive Date: 20250815
  Receipt Date: 20250815
  Transmission Date: 20251020
  Serious: Yes (Other)
  Sender: BIOVITRUM
  Company Number: EU-BIOVITRUM-2025-FR-011109

PATIENT

DRUGS (1)
  1. KINERET [Suspect]
     Active Substance: ANAKINRA
     Indication: Product used for unknown indication

REACTIONS (15)
  - Barrett^s oesophagus [Recovered/Resolved]
  - Dyspnoea exertional [Unknown]
  - Alcohol poisoning [Recovered/Resolved]
  - Prostatitis Escherichia coli [Recovered/Resolved]
  - Headache [Unknown]
  - Weight increased [Recovered/Resolved]
  - Multisystem inflammatory syndrome [Recovered/Resolved]
  - Cataract [Unknown]
  - Visual acuity reduced [Unknown]
  - Hyperreflexia [Unknown]
  - Agitation [Unknown]
  - Procedural pain [Unknown]
  - Abdominal pain upper [Recovered/Resolved]
  - Pruritus [Unknown]
  - Varicella [Recovered/Resolved]

NARRATIVE: CASE EVENT DATE: 20190201
